FAERS Safety Report 25405143 (Version 1)
Quarter: 2025Q2

REPORT INFORMATION
  Report Type: Spontaneous
  Country: US (occurrence: US)
  Receive Date: 20250606
  Receipt Date: 20250606
  Transmission Date: 20250716
  Serious: Yes (Other)
  Sender: ORGANON
  Company Number: US-ORGANON-O2505USA004344

PATIENT
  Age: 29 Year
  Sex: Female
  Weight: 90.703 kg

DRUGS (1)
  1. NEXPLANON [Suspect]
     Active Substance: ETONOGESTREL
     Indication: Contraception
     Route: 059
     Dates: start: 20210330, end: 20250529

REACTIONS (8)
  - Depression [Not Recovered/Not Resolved]
  - Anxiety [Not Recovered/Not Resolved]
  - Syncope [Unknown]
  - Suicidal ideation [Recovered/Resolved]
  - Fatigue [Unknown]
  - Self-injurious ideation [Recovered/Resolved]
  - Product prescribing issue [Unknown]
  - Incorrect product administration duration [Unknown]

NARRATIVE: CASE EVENT DATE: 20210901
